FAERS Safety Report 24237054 (Version 1)
Quarter: 2024Q3

REPORT INFORMATION
  Report Type: Spontaneous
  Country: US (occurrence: US)
  Receive Date: 20240822
  Receipt Date: 20240822
  Transmission Date: 20241017
  Serious: Yes (Death, Life-Threatening, Hospitalization, Other)
  Sender: RANBAXY
  Company Number: US-SUN PHARMACEUTICAL INDUSTRIES LTD-2024R1-463683

PATIENT
  Age: 7 Year
  Sex: Male

DRUGS (1)
  1. IMATINIB [Suspect]
     Active Substance: IMATINIB
     Indication: Myelodysplastic syndrome
     Route: 065

REACTIONS (3)
  - Left ventricular failure [Fatal]
  - Multiple organ dysfunction syndrome [Fatal]
  - Cardiac ventricular thrombosis [Fatal]
